FAERS Safety Report 9362905 (Version 1)
Quarter: 2013Q2

REPORT INFORMATION
  Report Type: Spontaneous
  Country: US (occurrence: None)
  Receive Date: 20130621
  Receipt Date: 20130621
  Transmission Date: 20140414
  Serious: Yes (Other)
  Sender: FDA-Public Use
  Company Number: None

PATIENT
  Age: 15 Year
  Sex: Male
  Weight: 104.33 kg

DRUGS (2)
  1. MONTELUKAST [Suspect]
     Indication: ASTHMA
     Dosage: ORAL-47
     Route: 048
     Dates: start: 20120920, end: 201302
  2. MONTELUKAST [Suspect]
     Indication: RHINITIS ALLERGIC
     Dosage: ORAL-47
     Route: 048
     Dates: start: 20120920, end: 201302

REACTIONS (4)
  - Mood swings [None]
  - Nausea [None]
  - Abdominal discomfort [None]
  - Product substitution issue [None]
